FAERS Safety Report 8465540-7 (Version None)
Quarter: 2012Q2

REPORT INFORMATION
  Report Type: 
  Country: None (occurrence: None)
  Receive Date: 20120626
  Receipt Date: 20120622
  Transmission Date: 20120825
  Serious: Yes (Other)
  Sender: FDA-Public Use
  Company Number: ES-AMGEN-ESPSP2011068373

PATIENT
  Age: 80 Year
  Sex: Female

DRUGS (11)
  1. ANTIDEPRESSANTS [Concomitant]
     Indication: DEPRESSION
  2. IBUPROFEN [Concomitant]
     Dosage: 600 MG, Q8H
  3. IDEOS UNIDIA [Concomitant]
  4. DIAMICRON [Concomitant]
     Dosage: 30 MG, QD
  5. LEXATIN                            /00424801/ [Concomitant]
     Dosage: 1.5 MG, QD
  6. PROLIA [Suspect]
     Indication: PRODUCT USED FOR UNKNOWN INDICATION
     Dosage: 60 MG, Q6MO
     Route: 058
     Dates: start: 20111205
  7. SIMVASTATIN [Concomitant]
     Dosage: 40 MG, QD
  8. HIDROFEROL [Concomitant]
     Dosage: 266 MG, QMO
  9. METFORMIN HCL [Concomitant]
     Indication: DIABETES MELLITUS
     Dosage: 850 MG, QD
  10. CYMBALTA [Concomitant]
     Dosage: 60 MG, UNK
  11. BENZODIAZEPINE DERIVATIVES [Concomitant]
     Indication: DEPRESSION

REACTIONS (3)
  - CONFUSIONAL STATE [None]
  - DEPRESSION [None]
  - URINARY TRACT INFECTION [None]
